FAERS Safety Report 11440458 (Version 1)
Quarter: 2015Q3

REPORT INFORMATION
  Report Type: Spontaneous
  Country: US (occurrence: None)
  Receive Date: 20150831
  Receipt Date: 20150831
  Transmission Date: 20151125
  Serious: Yes (Life-Threatening, Hospitalization)
  Sender: FDA-Public Use
  Company Number: None

PATIENT
  Age: 67 Year
  Sex: Female
  Weight: 95.26 kg

DRUGS (6)
  1. 5 FLUOROURACIL [Concomitant]
     Active Substance: FLUOROURACIL
  2. NEULASTA [Concomitant]
     Active Substance: PEGFILGRASTIM
  3. OXALIPLATIN. [Suspect]
     Active Substance: OXALIPLATIN
     Indication: PANCREATIC CARCINOMA
     Route: 042
     Dates: start: 20150729, end: 20150812
  4. FOLFIRINOX INCLUDING DEXAMETHASONE [Concomitant]
  5. LEUCOVORIN. [Concomitant]
     Active Substance: LEUCOVORIN
  6. IRINOTECAN [Suspect]
     Active Substance: IRINOTECAN
     Indication: PANCREATIC CARCINOMA
     Route: 042
     Dates: start: 20150729, end: 20150812

REACTIONS (9)
  - Diarrhoea [None]
  - Dehydration [None]
  - Acute kidney injury [None]
  - Seizure [None]
  - Hypotension [None]
  - Nausea [None]
  - Febrile neutropenia [None]
  - Vomiting [None]
  - Haemoglobin decreased [None]

NARRATIVE: CASE EVENT DATE: 20150818
